FAERS Safety Report 19014571 (Version 1)
Quarter: 2021Q1

REPORT INFORMATION
  Report Type: Spontaneous
  Country: HU (occurrence: HU)
  Receive Date: 20210316
  Receipt Date: 20210316
  Transmission Date: 20210420
  Serious: Yes (Hospitalization)
  Sender: FDA-Public Use
  Company Number: HU-SA-2021SA079720

PATIENT
  Sex: Female

DRUGS (2)
  1. CLEXANE T [Suspect]
     Active Substance: ENOXAPARIN SODIUM
     Dosage: 0.8 ML
  2. CLEXANE T [Suspect]
     Active Substance: ENOXAPARIN SODIUM
     Indication: THROMBOSIS PROPHYLAXIS
     Dosage: 0.4 ML

REACTIONS (2)
  - Cough [Recovered/Resolved]
  - Condition aggravated [Recovered/Resolved]
